FAERS Safety Report 8084833-9 (Version None)
Quarter: 2012Q1

REPORT INFORMATION
  Report Type: 
  Country: None (occurrence: None)
  Receive Date: 20120128
  Receipt Date: 20110323
  Transmission Date: 20120608
  Serious: No
  Sender: FDA-Public Use
  Company Number: US-ABBOTT-11P-163-0713623-00

PATIENT
  Age: 42 Year
  Sex: Female

DRUGS (6)
  1. HUMIRA [Suspect]
     Dosage: LOADING DOSE
     Dates: start: 20110320
  2. PENTASA [Concomitant]
     Indication: CROHN'S DISEASE
  3. HUMIRA [Suspect]
     Indication: CROHN'S DISEASE
     Dates: start: 20110201
  4. ZOLOFT [Concomitant]
     Indication: ANXIETY
  5. HUMIRA [Suspect]
     Dosage: DAY 29
  6. ATIVAN [Concomitant]
     Indication: ANXIETY

REACTIONS (3)
  - PAPULE [None]
  - ERYTHEMA [None]
  - PRURITUS [None]
